FAERS Safety Report 16285647 (Version 1)
Quarter: 2019Q2

REPORT INFORMATION
  Report Type: Report from Study
  Country: IN (occurrence: IN)
  Receive Date: 20190508
  Receipt Date: 20190508
  Transmission Date: 20190711
  Serious: Yes (Other)
  Sender: FDA-Public Use
  Company Number: PHHY2018IN194740

PATIENT
  Age: 59 Year
  Sex: Male
  Weight: 72 kg

DRUGS (4)
  1. CARDACE [Concomitant]
     Active Substance: RAMIPRIL
     Indication: PRODUCT USED FOR UNKNOWN INDICATION
     Dosage: 1 DF, QD
     Route: 048
  2. GALVUS MET [Suspect]
     Active Substance: METFORMIN HYDROCHLORIDE\VILDAGLIPTIN
     Indication: PRODUCT USED FOR UNKNOWN INDICATION
     Dosage: 1 DF, (METFORMIN 1000MG, VILDAGLIPTIN 50 MG) BID
     Route: 048
     Dates: start: 20181114
  3. ASPIRIN. [Concomitant]
     Active Substance: ASPIRIN
     Indication: PRODUCT USED FOR UNKNOWN INDICATION
     Dosage: 1 DF, QD (AFTERNOON)
     Route: 048
  4. BASAGLAR [Concomitant]
     Active Substance: INSULIN GLARGINE
     Indication: PRODUCT USED FOR UNKNOWN INDICATION
     Dosage: 12 DF, BID (MORNING AND NIGHT)
     Route: 065

REACTIONS (68)
  - Hyperglycaemia [Recovered/Resolved]
  - Hyperglycaemia [Recovered/Resolved]
  - Hyperglycaemia [Recovered/Resolved]
  - Hyperglycaemia [Recovered/Resolved]
  - Asthenia [Recovered/Resolved]
  - Weight decreased [Recovered/Resolved]
  - Limb injury [Unknown]
  - Blood glucose increased [Recovered/Resolved]
  - Hyperglycaemia [Recovered/Resolved]
  - Hyperglycaemia [Recovered/Resolved]
  - Hyperglycaemia [Recovered/Resolved]
  - Hyperglycaemia [Recovered/Resolved]
  - Hyperglycaemia [Recovered/Resolved]
  - Hyperglycaemia [Recovered/Resolved]
  - Hyperglycaemia [Recovered/Resolved]
  - Hyperglycaemia [Recovered/Resolved]
  - Hyperglycaemia [Recovered/Resolved]
  - Hyperglycaemia [Recovered/Resolved]
  - Hyperglycaemia [Recovered/Resolved]
  - Hyperglycaemia [Recovered/Resolved]
  - Hyperglycaemia [Recovered/Resolved]
  - Hyperglycaemia [Recovered/Resolved]
  - Hyperglycaemia [Recovered/Resolved]
  - Hyperglycaemia [Recovered/Resolved]
  - Hyperglycaemia [Recovered/Resolved]
  - Hyperglycaemia [Recovered/Resolved]
  - Hyperglycaemia [Recovered/Resolved]
  - Hyperglycaemia [Recovered/Resolved]
  - Blood pressure increased [Recovered/Resolved]
  - Glycosylated haemoglobin increased [Recovered/Resolved]
  - Hyperglycaemia [Recovered/Resolved]
  - Hyperglycaemia [Recovered/Resolved]
  - Hyperglycaemia [Recovered/Resolved]
  - Hyperglycaemia [Recovered/Resolved]
  - Hyperglycaemia [Recovered/Resolved]
  - Hyperglycaemia [Recovered/Resolved]
  - Hyperglycaemia [Recovered/Resolved]
  - Hyperglycaemia [Recovered/Resolved]
  - Hyperglycaemia [Recovered/Resolved]
  - Hyperglycaemia [Recovered/Resolved]
  - Hyperglycaemia [Recovered/Resolved]
  - Diabetic retinopathy [Unknown]
  - Intraocular pressure test abnormal [Recovered/Resolved]
  - Hyperglycaemia [Recovered/Resolved]
  - Hyperglycaemia [Recovered/Resolved]
  - Hyperglycaemia [Recovered/Resolved]
  - Hyperglycaemia [Recovered/Resolved]
  - Hyperglycaemia [Recovered/Resolved]
  - Hyperglycaemia [Recovered/Resolved]
  - Hyperglycaemia [Recovered/Resolved]
  - Hypoglycaemia [Recovered/Resolved]
  - Hypoglycaemia [Recovered/Resolved]
  - Hyperglycaemia [Recovered/Resolved]
  - Hyperglycaemia [Recovered/Resolved]
  - Hyperglycaemia [Recovered/Resolved]
  - Hyperglycaemia [Recovered/Resolved]
  - Hyperglycaemia [Recovered/Resolved]
  - Hyperglycaemia [Recovered/Resolved]
  - Glycosylated haemoglobin decreased [Unknown]
  - Hyperglycaemia [Recovered/Resolved]
  - Hyperglycaemia [Recovered/Resolved]
  - Hypoglycaemia [Recovered/Resolved]
  - Hyperglycaemia [Recovered/Resolved]
  - Hyperglycaemia [Recovered/Resolved]
  - Hyperglycaemia [Recovered/Resolved]
  - Hyperglycaemia [Recovered/Resolved]
  - Hyperglycaemia [Recovered/Resolved]
  - Blood pressure increased [Recovered/Resolved]

NARRATIVE: CASE EVENT DATE: 20181204
